FAERS Safety Report 7589651-3 (Version None)
Quarter: 2011Q3

REPORT INFORMATION
  Report Type: 
  Country: None (occurrence: None)
  Receive Date: 20110705
  Receipt Date: 20110624
  Transmission Date: 20111222
  Serious: Yes (Other)
  Sender: FDA-Public Use
  Company Number: DE-JNJFOC-20110603816

PATIENT
  Age: 51 Year
  Sex: Male

DRUGS (3)
  1. SIMPONI [Suspect]
     Indication: ANKYLOSING SPONDYLITIS
     Route: 058
     Dates: end: 20110404
  2. SIMPONI [Suspect]
     Route: 058
     Dates: start: 20110208
  3. TNF BLOCKER [Concomitant]

REACTIONS (1)
  - HEPATIC CIRRHOSIS [None]
